FAERS Safety Report 8252183-3 (Version None)
Quarter: 2012Q2

REPORT INFORMATION
  Report Type: 
  Country: None (occurrence: None)
  Receive Date: 20120402
  Receipt Date: 20110415
  Transmission Date: 20120825
  Serious: No
  Sender: FDA-Public Use
  Company Number: US-ABBOTT-11P-163-0804446-00

PATIENT
  Sex: Male
  Weight: 110.45 kg

DRUGS (3)
  1. TESTOSTERONE [Suspect]
     Indication: BLOOD TESTOSTERONE DECREASED
     Dosage: DAILY DOSE:  UNKNOWN
     Route: 062
     Dates: end: 20110401
  2. ALPRAZOLAM [Concomitant]
     Indication: ANXIETY
     Dosage: DAILY DOSE:  UNKNOWN
     Route: 065
  3. LISINOPRIL [Concomitant]
     Indication: HYPERTENSION
     Dosage: DAILY DOSE:  UNKNOWN
     Route: 065

REACTIONS (2)
  - LETHARGY [None]
  - LIBIDO DECREASED [None]
